FAERS Safety Report 11309469 (Version 1)
Quarter: 2015Q3

REPORT INFORMATION
  Report Type: Spontaneous
  Country: US (occurrence: US)
  Receive Date: 20150724
  Receipt Date: 20150724
  Transmission Date: 20151125
  Serious: No
  Sender: FDA-Public Use
  Company Number: US-GLAXOSMITHKLINE-US2015GSK086204

PATIENT
  Sex: Female

DRUGS (2)
  1. LAMOTRIGINE. [Suspect]
     Active Substance: LAMOTRIGINE
     Indication: PRODUCT USED FOR UNKNOWN INDICATION
     Dosage: UNK, U
  2. LATUDA [Suspect]
     Active Substance: LURASIDONE HYDROCHLORIDE
     Indication: PRODUCT USED FOR UNKNOWN INDICATION
     Dosage: UNK, U
     Route: 048
     Dates: start: 201409

REACTIONS (6)
  - Muscle twitching [Recovered/Resolved]
  - Performance status decreased [Recovered/Resolved]
  - Somnolence [Recovered/Resolved]
  - Middle insomnia [Recovered/Resolved]
  - Restlessness [Recovered/Resolved]
  - Limb discomfort [Recovered/Resolved]
